FAERS Safety Report 13624059 (Version 1)
Quarter: 2017Q2

REPORT INFORMATION
  Report Type: Spontaneous
  Country: US (occurrence: US)
  Receive Date: 20170607
  Receipt Date: 20170607
  Transmission Date: 20170830
  Serious: No
  Sender: FDA-Public Use
  Company Number: US-PURDUE-USA-2016-0135023

PATIENT
  Sex: Female

DRUGS (2)
  1. BUTRANS [Suspect]
     Active Substance: BUPRENORPHINE
     Indication: OSTEOPOROSIS
     Dosage: 10 MCG/HR, WEEKLY
     Route: 062
     Dates: end: 201611
  2. BUTRANS [Suspect]
     Active Substance: BUPRENORPHINE
     Indication: BACK DISORDER

REACTIONS (7)
  - Nausea [Unknown]
  - Unevaluable event [Unknown]
  - Product adhesion issue [Recovered/Resolved]
  - Wrong technique in product usage process [Recovered/Resolved]
  - Application site vesicles [Unknown]
  - Gait disturbance [Unknown]
  - Application site pain [Unknown]
